FAERS Safety Report 9890938 (Version 1)
Quarter: 2014Q1

REPORT INFORMATION
  Report Type: Report from Study
  Country: US (occurrence: US)
  Receive Date: 20140212
  Receipt Date: 20140212
  Transmission Date: 20141002
  Serious: Yes (Other)
  Sender: FDA-Public Use
  Company Number: US-BAXTER-2014BAX005864

PATIENT
  Sex: 0

DRUGS (3)
  1. CYCLOPHOSPHAMIDE FOR INJECTION, USP [Suspect]
     Indication: PRIMARY AMYLOIDOSIS
     Dosage: 3 CYCLES
     Route: 058
  2. BORTEZOMIB [Suspect]
     Indication: PRIMARY AMYLOIDOSIS
     Route: 065
  3. DEXAMETHASONE [Suspect]
     Indication: PRIMARY AMYLOIDOSIS
     Route: 065

REACTIONS (1)
  - Disease recurrence [Unknown]
